FAERS Safety Report 26053085 (Version 1)
Quarter: 2025Q4

REPORT INFORMATION
  Report Type: Spontaneous
  Country: EU (occurrence: EU)
  Receive Date: 20251117
  Receipt Date: 20251117
  Transmission Date: 20260117
  Serious: Yes (Hospitalization)
  Sender: TEVA
  Company Number: None

PATIENT
  Age: 76 Year
  Sex: Male

DRUGS (4)
  1. NAPROXEN [Suspect]
     Active Substance: NAPROXEN
     Indication: Poisoning deliberate
     Dosage: TIME INTERVAL: TOTAL
     Route: 048
     Dates: start: 20251018, end: 20251018
  2. NEFOPAM HYDROCHLORIDE [Suspect]
     Active Substance: NEFOPAM HYDROCHLORIDE
     Indication: Poisoning deliberate
     Dosage: TIME INTERVAL: TOTAL
     Route: 048
     Dates: start: 20251018, end: 20251018
  3. SKENAN [Suspect]
     Active Substance: MORPHINE SULFATE
     Indication: Poisoning deliberate
     Dosage: TIME INTERVAL: TOTAL: PROLONGED-RELEASE MICROGRANULES IN CAPSULES
     Route: 048
     Dates: start: 20251018, end: 20251018
  4. ACETAMINOPHEN\OPIUM [Suspect]
     Active Substance: ACETAMINOPHEN\OPIUM
     Indication: Poisoning deliberate
     Dosage: TIME INTERVAL: TOTAL: 500 MG/25 MG
     Route: 048
     Dates: start: 20251018, end: 20251018

REACTIONS (5)
  - Somnolence [Recovering/Resolving]
  - Acute kidney injury [Recovering/Resolving]
  - Rhabdomyolysis [Recovering/Resolving]
  - Bradypnoea [Recovering/Resolving]
  - Miosis [Recovering/Resolving]

NARRATIVE: CASE EVENT DATE: 20251019
